FAERS Safety Report 9785274 (Version 2)
Quarter: 2014Q1

REPORT INFORMATION
  Report Type: Spontaneous
  Country: US (occurrence: None)
  Receive Date: 20131224
  Receipt Date: 20140212
  Transmission Date: 20141002
  Serious: Yes (Other)
  Sender: FDA-Public Use
  Company Number: 2013-US-004717

PATIENT
  Age: 48 Year
  Sex: Female

DRUGS (1)
  1. XYREM [Suspect]
     Indication: NARCOLEPSY
     Route: 048
     Dates: start: 201011

REACTIONS (7)
  - Foot fracture [None]
  - Osteoporosis [None]
  - Cataplexy [None]
  - Somnolence [None]
  - Emotional disorder [None]
  - Foot operation [None]
  - Therapy cessation [None]
